FAERS Safety Report 4286165-3 (Version None)
Quarter: 2004Q1

REPORT INFORMATION
  Report Type: 
  Country: None (occurrence: None)
  Receive Date: 20040204
  Receipt Date: 20040204
  Transmission Date: 20041129
  Serious: Yes (Hospitalization)
  Sender: FDA-Public Use
  Company Number: None

PATIENT
  Sex: Female
  Weight: 72.5755 kg

DRUGS (7)
  1. TEMOZOLOMIDE 5 MG, 100 MG, 250 MG [Suspect]
     Indication: ANAPLASTIC ASTROCYTOMA
     Dosage: 365 MG DAILY X 5 ORAL
     Route: 048
     Dates: start: 20040127, end: 20040131
  2. RADIATION THERAPY [Concomitant]
  3. DEXAMETHASONE [Concomitant]
  4. HYDROCODONE/APAP [Concomitant]
  5. GLUCOVANCE [Concomitant]
  6. NORVASC [Concomitant]
  7. DILANTIN [Concomitant]

REACTIONS (1)
  - DEEP VEIN THROMBOSIS [None]
